FAERS Safety Report 8928425 (Version 1)
Quarter: 2012Q4

REPORT INFORMATION
  Report Type: 
  Country: AE (occurrence: AE)
  Receive Date: 20121128
  Receipt Date: 20121128
  Transmission Date: 20130627
  Serious: Yes (Hospitalization)
  Sender: FDA-Public Use
  Company Number: AE-009507513-1211ARE011163

PATIENT
  Sex: Female

DRUGS (3)
  1. VICTRELIS 200 MG [Suspect]
     Dosage: UNK
     Dates: start: 201208
  2. REBETOL [Suspect]
     Dosage: UNK
     Dates: start: 201208
  3. PEG-INTRON [Suspect]
     Indication: HEPATITIS C
     Dosage: UNK
     Dates: start: 201208

REACTIONS (2)
  - Dyspnoea [Recovered/Resolved]
  - Blood bilirubin increased [Recovered/Resolved]
